FAERS Safety Report 23988377 (Version 3)
Quarter: 2024Q3

REPORT INFORMATION
  Report Type: Report from Study
  Country: CL (occurrence: CL)
  Receive Date: 20240619
  Receipt Date: 20240704
  Transmission Date: 20241017
  Serious: Yes (Other)
  Sender: JOHNSON AND JOHNSON
  Company Number: CL-JNJFOC-20240643285

PATIENT
  Age: 52 Year
  Sex: Female

DRUGS (1)
  1. SIMPONI [Suspect]
     Active Substance: GOLIMUMAB
     Indication: Colitis ulcerative
     Dosage: , LAST ADHERENCE REPORTED 21-JUNE-2024
     Route: 058
     Dates: start: 20240411

REACTIONS (2)
  - Rectal haemorrhage [Unknown]
  - Drug ineffective [Unknown]
